FAERS Safety Report 17547048 (Version 3)
Quarter: 2020Q2

REPORT INFORMATION
  Report Type: Spontaneous
  Country: CH (occurrence: CH)
  Receive Date: 20200316
  Receipt Date: 20200413
  Transmission Date: 20200713
  Serious: Yes (Other)
  Sender: FDA-Public Use
  Company Number: CH-BAUSCH-BL-2020-008128

PATIENT
  Age: 67 Year
  Sex: Female
  Weight: 51 kg

DRUGS (3)
  1. ASPIRIN. [Suspect]
     Active Substance: ASPIRIN
     Indication: CARDIAC DISORDER
     Route: 048
     Dates: start: 2019, end: 20200204
  2. MEFENACID [Suspect]
     Active Substance: MEFENAMIC ACID
     Indication: PAIN
     Route: 048
  3. PLENVU [Suspect]
     Active Substance: ASCORBIC ACID\POLYETHYLENE GLYCOL 3350\POTASSIUM CHLORIDE\SODIUM ASCORBATE\SODIUM CHLORIDE\SODIUM SULFATE
     Indication: BOWEL PREPARATION
     Dosage: 100 SPLIT - DOSING
     Route: 048
     Dates: start: 20200203, end: 20200204

REACTIONS (3)
  - Melaena [Unknown]
  - Haematemesis [Unknown]
  - Gastrointestinal haemorrhage [Recovered/Resolved]

NARRATIVE: CASE EVENT DATE: 20200204
